FAERS Safety Report 12975846 (Version 2)
Quarter: 2017Q1

REPORT INFORMATION
  Report Type: Spontaneous
  Country: US (occurrence: US)
  Receive Date: 20161125
  Receipt Date: 20170217
  Transmission Date: 20170428
  Serious: No
  Sender: FDA-Public Use
  Company Number: US-009507513-1611USA005799

PATIENT
  Age: 42 Year
  Sex: Female
  Weight: 59.86 kg

DRUGS (6)
  1. TOPAMAX [Concomitant]
     Active Substance: TOPIRAMATE
     Dosage: 25 MG, BID
     Route: 048
  2. CELEXA [Concomitant]
     Active Substance: CITALOPRAM HYDROBROMIDE
     Dosage: 40 MG, DAILY AT BEDTIME
  3. DESYREL [Concomitant]
     Active Substance: TRAZODONE HYDROCHLORIDE
     Dosage: 50 MG, DAILY AT BEDTIME
     Dates: start: 20160919
  4. KLONOPIN [Concomitant]
     Active Substance: CLONAZEPAM
     Indication: ANXIETY
     Dosage: 1 MG, BID
     Route: 048
  5. FIORINAL (ASPIRIN (+) BUTALBITAL (+) CAFFEINE) [Concomitant]
     Indication: HEADACHE
     Dosage: TAKE 1 TABLET BY MOUTH EVERY 4 HOURS AS NEEDED
  6. BELSOMRA [Suspect]
     Active Substance: SUVOREXANT
     Indication: INSOMNIA
     Dosage: 10 MG, AT BEDTIME
     Route: 048
     Dates: start: 20160914, end: 20160919

REACTIONS (12)
  - Clumsiness [Recovered/Resolved]
  - Foot fracture [Recovered/Resolved]
  - Fall [Recovered/Resolved]
  - Plantar fasciitis [Recovered/Resolved]
  - Arthralgia [Recovered/Resolved]
  - Skin warm [Unknown]
  - Dizziness [Unknown]
  - Joint injury [Recovered/Resolved]
  - Fibula fracture [Recovered/Resolved]
  - Ligament sprain [Recovered/Resolved]
  - Ecchymosis [Recovered/Resolved]
  - Dry skin [Unknown]

NARRATIVE: CASE EVENT DATE: 2016
